FAERS Safety Report 8786496 (Version 1)
Quarter: 2012Q4

REPORT INFORMATION
  Report Type: Report from Study
  Country: US (occurrence: US)
  Receive Date: 20120914
  Receipt Date: 20120914
  Transmission Date: 20130627
  Serious: No
  Sender: FDA-Public Use
  Company Number: US-VERTEX PHARMACEUTICAL INC.-AE-2012-009664

PATIENT

DRUGS (6)
  1. INCIVEK [Suspect]
     Indication: HEPATITIS C
     Route: 048
  2. RIBAPAK [Concomitant]
     Indication: HEPATITIS C
     Route: 048
  3. REYATAZ [Concomitant]
  4. AMLODIPINE [Concomitant]
  5. EPZICOM [Concomitant]
  6. LEVOTHYROXIN [Concomitant]

REACTIONS (3)
  - Off label use [Unknown]
  - Gastrooesophageal reflux disease [Unknown]
  - Anaemia [Unknown]
